FAERS Safety Report 8503192-8 (Version None)
Quarter: 2012Q3

REPORT INFORMATION
  Report Type: 
  Country: None (occurrence: None)
  Receive Date: 20120711
  Receipt Date: 20120704
  Transmission Date: 20120928
  Serious: Yes (Hospitalization)
  Sender: FDA-Public Use
  Company Number: CA-B.I. PHARMACEUTICALS,INC./RIDGEFIELD-2012-CN-01407CN

PATIENT
  Age: 89 Year
  Sex: Female

DRUGS (2)
  1. PRADAXA [Suspect]
     Indication: ATRIAL FIBRILLATION
     Dosage: 220 MG
     Dates: start: 20111001, end: 20120201
  2. MEDICATION NOT FURTHER SPECIFIED [Concomitant]

REACTIONS (2)
  - RENAL FAILURE ACUTE [None]
  - HAEMORRHOIDAL HAEMORRHAGE [None]
